FAERS Safety Report 7000307-8 (Version None)
Quarter: 2010Q3

REPORT INFORMATION
  Report Type: 
  Country: None (occurrence: None)
  Receive Date: 20100920
  Receipt Date: 20070712
  Transmission Date: 20110219
  Serious: Yes (Other)
  Sender: FDA-Public Use
  Company Number: US-ASTRAZENECA-2006UW24296

PATIENT
  Sex: Male
  Weight: 82.1 kg

DRUGS (22)
  1. SEROQUEL [Suspect]
     Indication: SLEEP DISORDER
     Dosage: 25 MG, 800 MG FLUCTUATING
     Route: 048
     Dates: start: 20020801
  2. SEROQUEL [Suspect]
     Indication: BIPOLAR DISORDER
     Dosage: 25 MG, 800 MG FLUCTUATING
     Route: 048
     Dates: start: 20020801
  3. SEROQUEL [Suspect]
     Dosage: 50-900 MG AND 1200 MG
     Route: 048
     Dates: start: 20020101
  4. SEROQUEL [Suspect]
     Dosage: 50-900 MG AND 1200 MG
     Route: 048
     Dates: start: 20020101
  5. ZYPREXA [Suspect]
     Route: 048
     Dates: start: 19990715
  6. ZYPREXA [Suspect]
     Dates: start: 20000101, end: 20060101
  7. ABILIFY [Concomitant]
     Route: 048
  8. HALDOL [Concomitant]
     Dates: start: 19940101
  9. THORAZINE [Concomitant]
     Dates: start: 19940101
  10. XANAX [Concomitant]
     Dates: start: 20040711
  11. LIPITOR [Concomitant]
     Route: 048
     Dates: start: 20040711
  12. DILANTIN [Concomitant]
     Dates: start: 20040711
  13. PRILOSEC [Concomitant]
     Dates: start: 20040711
  14. PLAVIX [Concomitant]
     Dates: start: 20040711
  15. MS CONTIN [Concomitant]
     Dates: start: 20040711
  16. PERCOCET [Concomitant]
     Indication: PAIN
     Dosage: 10/325 MG EVERY SIX HOURS AS NEEDED
     Route: 048
     Dates: start: 20040711
  17. RIFAMPIN [Concomitant]
     Dosage: 300 MG PER ORAL. DAILY ON AN EMPTY STOMACH ONE HOUR PRIOR TO MEAL OR TWO HOURS AFTER A MEAL.
     Route: 048
  18. NEURONTIN [Concomitant]
     Dosage: 300 TO 900 MG
     Dates: start: 20020801
  19. INSULIN [Concomitant]
     Dates: start: 20020822
  20. LORTAB [Concomitant]
     Dates: start: 20040127
  21. TIAZAC [Concomitant]
     Dates: start: 20040127
  22. ACTOS [Concomitant]
     Dates: start: 20020726

REACTIONS (4)
  - DIABETES MELLITUS [None]
  - DIABETIC COMA [None]
  - KETOACIDOSIS [None]
  - TYPE 2 DIABETES MELLITUS [None]
